FAERS Safety Report 7130961-1 (Version None)
Quarter: 2010Q4

REPORT INFORMATION
  Report Type: 
  Country: None (occurrence: None)
  Receive Date: 20101201
  Receipt Date: 20101119
  Transmission Date: 20110411
  Serious: Yes (Hospitalization)
  Sender: FDA-Public Use
  Company Number: A0804627A

PATIENT
  Age: 50 Year
  Sex: Male
  Weight: 8.2 kg

DRUGS (8)
  1. AVANDAMET [Suspect]
     Dosage: 4MG TWICE PER DAY
     Route: 048
     Dates: start: 20030101, end: 20040601
  2. AVANDIA [Suspect]
     Indication: DIABETES MELLITUS
     Dosage: 4MG TWICE PER DAY
     Route: 048
  3. ZYPREXA [Concomitant]
  4. METFORMIN HCL [Concomitant]
  5. SEROQUEL [Concomitant]
  6. INSULIN [Concomitant]
  7. ZOCOR [Concomitant]
  8. SYNTHROID [Concomitant]

REACTIONS (1)
  - CEREBROVASCULAR ACCIDENT [None]
